FAERS Safety Report 9557183 (Version 1)
Quarter: 2013Q3

REPORT INFORMATION
  Report Type: Spontaneous
  Country: US (occurrence: None)
  Receive Date: 20130815
  Receipt Date: 20130815
  Transmission Date: 20140515
  Serious: Yes (Hospitalization, Other)
  Sender: FDA-Public Use
  Company Number: ADDR-2012-02154

PATIENT
  Age: 26 Year
  Sex: Male

DRUGS (1)
  1. BACLOFEN UNKNOWN (BACLOFEN INTRATHECAL) [Suspect]
     Indication: MUSCLE SPASTICITY

REACTIONS (10)
  - Abdominal pain [None]
  - Cystitis [None]
  - Dizziness [None]
  - Drug withdrawal syndrome [None]
  - Fall [None]
  - Headache [None]
  - Hyperhidrosis [None]
  - Tremor [None]
  - Muscle spasms [None]
  - Pruritus [None]
